FAERS Safety Report 9524945 (Version 1)
Quarter: 2013Q3

REPORT INFORMATION
  Report Type: Spontaneous
  Country: IN (occurrence: IN)
  Receive Date: 20130916
  Receipt Date: 20130916
  Transmission Date: 20140515
  Serious: Yes (Life-Threatening)
  Sender: FDA-Public Use
  Company Number: IN-PFIZER INC-2013264078

PATIENT
  Age: 16 Year
  Sex: Male

DRUGS (1)
  1. PHENYTOIN SODIUM [Suspect]
     Indication: GRAND MAL CONVULSION
     Dosage: 1000 MG IN NORMAL SALINE
     Route: 040

REACTIONS (1)
  - Compartment syndrome [Recovered/Resolved]
